FAERS Safety Report 7412459-6 (Version None)
Quarter: 2011Q2

REPORT INFORMATION
  Report Type: 
  Country: None (occurrence: None)
  Receive Date: 20110413
  Receipt Date: 20110412
  Transmission Date: 20111010
  Serious: Yes (Death, Hospitalization)
  Sender: FDA-Public Use
  Company Number: PHHY2011US14351

PATIENT
  Sex: Male
  Weight: 135.62 kg

DRUGS (7)
  1. SULFASALAZINE [Concomitant]
  2. PLAQUENIL [Concomitant]
  3. EXJADE [Suspect]
     Indication: MYELODYSPLASTIC SYNDROME
     Dosage: 500 MG, BID
     Route: 048
     Dates: start: 20110113
  4. LOVASTATIN [Concomitant]
  5. LASIX [Concomitant]
  6. TRIAMTERENE AND HYDROCHLOROTHIAZID [Concomitant]
  7. ATENOLOL [Concomitant]

REACTIONS (2)
  - NEOPLASM MALIGNANT [None]
  - ACUTE MYELOID LEUKAEMIA [None]
